FAERS Safety Report 5631489-8 (Version None)
Quarter: 2008Q1

REPORT INFORMATION
  Report Type: 
  Country: None (occurrence: None)
  Receive Date: 20080215
  Receipt Date: 20080204
  Transmission Date: 20080703
  Serious: Yes (Death, Hospitalization)
  Sender: FDA-Public Use
  Company Number: 231248J08USA

PATIENT
  Age: 63 Year
  Sex: Female
  Weight: 45.3597 kg

DRUGS (2)
  1. REBIF [Suspect]
     Indication: MULTIPLE SCLEROSIS
     Dosage: 44 MCG, 3 IN 1 WEEKS, SUBCUTANEOUS
     Route: 058
     Dates: start: 20030204, end: 20071030
  2. UNSPECIFIED ANTIBIOTIC (ANTIBIOTICS) [Concomitant]

REACTIONS (7)
  - BLOOD DISORDER [None]
  - CARDIAC FAILURE [None]
  - MULTIPLE SCLEROSIS [None]
  - PNEUMONIA ASPIRATION [None]
  - STAPHYLOCOCCAL INFECTION [None]
  - URINARY INCONTINENCE [None]
  - URINARY TRACT INFECTION STAPHYLOCOCCAL [None]
